FAERS Safety Report 23385004 (Version 1)
Quarter: 2024Q1

REPORT INFORMATION
  Report Type: Report from Study
  Country: US (occurrence: US)
  Receive Date: 20240109
  Receipt Date: 20240109
  Transmission Date: 20240410
  Serious: Yes (Hospitalization, Other)
  Sender: FDA-Public Use
  Company Number: US-ABBVIE-5577537

PATIENT
  Sex: Male

DRUGS (1)
  1. CREON [Suspect]
     Active Substance: PANCRELIPASE AMYLASE\PANCRELIPASE LIPASE\PANCRELIPASE PROTEASE
     Indication: Pancreatic failure
     Dosage: FORM STRENGTH: 12000 UNIT, 3 TIMES A DAY WITH MEALS
     Route: 048
     Dates: start: 1998, end: 20230103

REACTIONS (9)
  - Concussion [Unknown]
  - Parkinson^s disease [Not Recovered/Not Resolved]
  - Fall [Recovered/Resolved]
  - Coma [Not Recovered/Not Resolved]
  - Dementia [Not Recovered/Not Resolved]
  - Vertigo [Not Recovered/Not Resolved]
  - Cerebral haemorrhage [Recovered/Resolved]
  - Deafness [Not Recovered/Not Resolved]
  - Fracture [Unknown]

NARRATIVE: CASE EVENT DATE: 20080101
